FAERS Safety Report 17505655 (Version 1)
Quarter: 2020Q1

REPORT INFORMATION
  Report Type: Other
  Country: US (occurrence: US)
  Receive Date: 20200305
  Receipt Date: 20200305
  Transmission Date: 20200409
  Serious: No
  Sender: FDA-Public Use
  Company Number: US-ASCENT PHARMACEUTICALS, INC.-2081325

PATIENT

DRUGS (1)
  1. HYDROCODONE BITARTRATE AND ACETAMINOPHEN [Suspect]
     Active Substance: ACETAMINOPHEN\HYDROCODONE BITARTRATE
     Indication: PAIN
     Route: 048

REACTIONS (6)
  - Headache [Unknown]
  - Unevaluable event [Unknown]
  - Product substitution issue [Unknown]
  - Drug ineffective [Unknown]
  - Pruritus [Unknown]
  - Heart rate increased [Unknown]
